FAERS Safety Report 8597173-6 (Version None)
Quarter: 2012Q3

REPORT INFORMATION
  Report Type: 
  Country: None (occurrence: None)
  Receive Date: 20120816
  Receipt Date: 20120806
  Transmission Date: 20120928
  Serious: No
  Sender: FDA-Public Use
  Company Number: US-BIOGENIDEC-2012BI030498

PATIENT
  Age: 71 Year
  Sex: Female

DRUGS (2)
  1. TYSABRI [Suspect]
     Route: 042
     Dates: start: 20090714, end: 20110512
  2. TYSABRI [Suspect]
     Indication: MULTIPLE SCLEROSIS
     Route: 042
     Dates: start: 20120112

REACTIONS (7)
  - WEIGHT DECREASED [None]
  - FEAR [None]
  - SLEEP DISORDER [None]
  - CENTRAL NERVOUS SYSTEM LESION [None]
  - ASTHENIA [None]
  - GAIT DISTURBANCE [None]
  - FALL [None]
